FAERS Safety Report 10478227 (Version 1)
Quarter: 2014Q3

REPORT INFORMATION
  Report Type: Spontaneous
  Country: US (occurrence: None)
  Receive Date: 20140924
  Receipt Date: 20140924
  Transmission Date: 20150326
  Serious: Yes (Hospitalization, Disabling)
  Sender: FDA-Public Use
  Company Number: 2537097

PATIENT
  Age: 9 Year
  Sex: Female

DRUGS (1)
  1. CLINDAMYCIN [Suspect]
     Active Substance: CLINDAMYCIN\CLINDAMYCIN PHOSPHATE
     Indication: PHARYNGITIS STREPTOCOCCAL
     Dosage: NOT REPORTED, UNKNOWN

REACTIONS (9)
  - Muscle necrosis [None]
  - Syncope [None]
  - Oropharyngeal pain [None]
  - Septic shock [None]
  - Iatrogenic injury [None]
  - Influenza like illness [None]
  - Colitis ischaemic [None]
  - Gas gangrene [None]
  - Clostridium difficile colitis [None]
